FAERS Safety Report 9768569 (Version 5)
Quarter: 2015Q2

REPORT INFORMATION
  Report Type: Report from Study
  Country: CL (occurrence: CL)
  Receive Date: 20131218
  Receipt Date: 20150402
  Transmission Date: 20150821
  Serious: Yes (Other)
  Sender: FDA-Public Use
  Company Number: CL-ROCHE-1321469

PATIENT
  Age: 50 Year
  Sex: Male
  Weight: 56.7 kg

DRUGS (1)
  1. XELODA [Suspect]
     Active Substance: CAPECITABINE
     Indication: COLON CANCER
     Dosage: 14 DAYS PER CYCLE
     Route: 048
     Dates: start: 20131126, end: 20140427

REACTIONS (11)
  - Anal haemorrhage [Recovered/Resolved]
  - Pulmonary pain [Not Recovered/Not Resolved]
  - Headache [Recovering/Resolving]
  - Abdominal pain lower [Not Recovered/Not Resolved]
  - Rectal discharge [Recovered/Resolved]
  - Proctalgia [Not Recovered/Not Resolved]
  - Chest pain [Not Recovered/Not Resolved]
  - Abdominal pain upper [Not Recovered/Not Resolved]
  - Disease progression [Not Recovered/Not Resolved]
  - Abdominal pain upper [Recovering/Resolving]
  - Skin hyperpigmentation [Not Recovered/Not Resolved]

NARRATIVE: CASE EVENT DATE: 20131210
